FAERS Safety Report 9450912 (Version 1)
Quarter: 2013Q3

REPORT INFORMATION
  Report Type: Spontaneous
  Country: US (occurrence: US)
  Receive Date: 20130809
  Receipt Date: 20130809
  Transmission Date: 20140515
  Serious: Yes (Hospitalization)
  Sender: FDA-Public Use
  Company Number: US-BAYER-2013-096407

PATIENT
  Age: 42 Year
  Sex: Female
  Weight: 68 kg

DRUGS (10)
  1. YAZ [Suspect]
     Indication: CONTRACEPTION
  2. YAZ [Suspect]
     Indication: MIGRAINE
  3. ADVIL [Concomitant]
     Dosage: OCCASIONAL
  4. SINGULAIR [Concomitant]
     Dosage: 10 MG, UNK
  5. HYDROCORTISONE VALERATE [Concomitant]
     Dosage: 2% CREAM
  6. AZITHROMYCIN [Concomitant]
     Dosage: 250 MG, UNK
  7. OXYCODONE W/PARACETAMOL [Concomitant]
     Dosage: 5-32 MG
  8. ONDANSETRON [Concomitant]
     Dosage: 4 MG, UNK
  9. CELEBREX [Concomitant]
     Dosage: 200 MG, UNK
  10. HEPARIN [Concomitant]
     Indication: DEEP VEIN THROMBOSIS

REACTIONS (1)
  - Deep vein thrombosis [Recovered/Resolved]
